FAERS Safety Report 25998744 (Version 1)
Quarter: 2025Q4

REPORT INFORMATION
  Report Type: Spontaneous
  Country: US (occurrence: US)
  Receive Date: 20251105
  Receipt Date: 20251105
  Transmission Date: 20260118
  Serious: No
  Sender: LEO PHARM
  Company Number: US-LEO Pharma-383930

PATIENT
  Age: 45 Year
  Sex: Male

DRUGS (1)
  1. ADBRY [Suspect]
     Active Substance: TRALOKINUMAB-LDRM
     Indication: Product used for unknown indication
     Dosage: TREATMENT ONGOING??INJECT 2 PENS (300MG/2ML EACH) SUBCUTANEOUS ON DAY 1 (10/11/25), THEN INJECT 1 PE
     Route: 058
     Dates: start: 20251011

REACTIONS (3)
  - Rash [Not Recovered/Not Resolved]
  - Dry skin [Unknown]
  - Erythema [Not Recovered/Not Resolved]
